FAERS Safety Report 13781095 (Version 1)
Quarter: 2017Q3

REPORT INFORMATION
  Report Type: Spontaneous
  Country: US (occurrence: US)
  Receive Date: 20170724
  Receipt Date: 20170724
  Transmission Date: 20171127
  Serious: No
  Sender: FDA-Public Use
  Company Number: US-AMGEN-USASP2017108371

PATIENT
  Age: 52 Year
  Sex: Female

DRUGS (1)
  1. ENBREL [Suspect]
     Active Substance: ETANERCEPT
     Indication: PRODUCT USED FOR UNKNOWN INDICATION
     Dosage: 50 MG, QWK
     Route: 058

REACTIONS (12)
  - Diarrhoea [Unknown]
  - Breast pain [Unknown]
  - Inflammation [Unknown]
  - Nausea [Unknown]
  - Breast engorgement [Unknown]
  - Dyspepsia [Unknown]
  - Malaise [Unknown]
  - Wheezing [Unknown]
  - Chills [Unknown]
  - Muscle spasms [Unknown]
  - Headache [Unknown]
  - Chest pain [Unknown]
